FAERS Safety Report 5113392-5 (Version None)
Quarter: 2006Q3

REPORT INFORMATION
  Report Type: 
  Country: None (occurrence: None)
  Receive Date: 20060920
  Receipt Date: 20060906
  Transmission Date: 20061208
  Serious: Yes (Other)
  Sender: FDA-Public Use
  Company Number: 229534

PATIENT
  Age: 52 Year
  Sex: Male

DRUGS (2)
  1. RITUXAN [Suspect]
     Indication: NON-HODGKIN'S LYMPHOMA
     Dosage: 375 MG, UNK, INTRAVENOUS
     Route: 042
     Dates: start: 20060606, end: 20060705
  2. FLUDARABINE PHOSPHATE [Suspect]
     Indication: NON-HODGKIN'S LYMPHOMA
     Dosage: 70 MG, UNK, ORAL
     Route: 048
     Dates: start: 20060606, end: 20060709

REACTIONS (1)
  - HAEMOLYTIC ANAEMIA [None]
